FAERS Safety Report 17806524 (Version 1)
Quarter: 2020Q2

REPORT INFORMATION
  Report Type: Spontaneous
  Country: GB (occurrence: GB)
  Receive Date: 20200520
  Receipt Date: 20200520
  Transmission Date: 20200714
  Serious: Yes (Other)
  Sender: FDA-Public Use
  Company Number: GB-TEVA-2020-GB-1236645

PATIENT
  Age: 57 Year
  Sex: Female
  Weight: 80 kg

DRUGS (9)
  1. PARACETAMOL [Concomitant]
     Active Substance: ACETAMINOPHEN
     Dosage: TAKE 1 OR 2 4 TIMES A DAY.
     Dates: start: 20191015
  2. FOLIC ACID. [Concomitant]
     Active Substance: FOLIC ACID
     Dosage: 6 DAYS A WEEK.
     Dates: start: 20191015
  3. OMEPRAZOLE. [Concomitant]
     Active Substance: OMEPRAZOLE
     Dosage: TAKE ONE TO TWO DAILY.
     Dates: start: 20200226
  4. PREDNISOLONE SODIUM PHOSPHATE. [Concomitant]
     Active Substance: PREDNISOLONE SODIUM PHOSPHATE
     Dosage: USE AS DIRECTED.
     Dates: start: 20191015
  5. NAPROXEN. [Suspect]
     Active Substance: NAPROXEN
     Dosage: 750 MG
     Dates: start: 20200420
  6. ILUBE [Concomitant]
     Dosage: 4 GTT
     Dates: start: 20191015
  7. AMITRIPTYLINE HYDROCHLORIDE. [Concomitant]
     Active Substance: AMITRIPTYLINE HYDROCHLORIDE
     Dosage: ONE OR TWO A DAY CAN BE INCREASED IF NEEDED.
     Dates: start: 20191015
  8. METHOTREXATE. [Concomitant]
     Active Substance: METHOTREXATE
     Dosage: 6 TABLETS. 15 MG
     Dates: start: 20191015
  9. LACRI-LUBE [Concomitant]
     Dosage: APPLY
     Dates: start: 20191015

REACTIONS (2)
  - Rash macular [Recovered/Resolved]
  - Abdominal discomfort [Unknown]

NARRATIVE: CASE EVENT DATE: 20200427
